FAERS Safety Report 9528877 (Version 2)
Quarter: 2013Q4

REPORT INFORMATION
  Report Type: Report from Study
  Country: DE (occurrence: DE)
  Receive Date: 20130917
  Receipt Date: 20131011
  Transmission Date: 20140711
  Serious: Yes (Other)
  Sender: FDA-Public Use
  Company Number: DE-ABBVIE-13P-062-1145535-00

PATIENT
  Age: 75 Year
  Sex: Female
  Weight: 48 kg

DRUGS (5)
  1. HUMIRA [Suspect]
     Indication: RHEUMATOID ARTHRITIS
     Route: 058
     Dates: start: 200807
  2. METOPROLOL [Concomitant]
     Indication: CORONARY ARTERY DISEASE
  3. SIMVASTATINE [Concomitant]
     Indication: HYPERLIPIDAEMIA
  4. ALENDRONIC ACID [Concomitant]
     Indication: OSTEOPOROSIS
  5. NORSPAN [Concomitant]
     Indication: OSTEOARTHRITIS

REACTIONS (4)
  - Spinal fracture [Not Recovered/Not Resolved]
  - Renal function test abnormal [Not Recovered/Not Resolved]
  - Back pain [Not Recovered/Not Resolved]
  - Osteoporosis [Not Recovered/Not Resolved]
